FAERS Safety Report 16259314 (Version 1)
Quarter: 2019Q2

REPORT INFORMATION
  Report Type: Spontaneous
  Country: FR (occurrence: FR)
  Receive Date: 20190501
  Receipt Date: 20190501
  Transmission Date: 20190711
  Serious: Yes (Death)
  Sender: FDA-Public Use
  Company Number: FR-TEVA-2019-FR-1043403

PATIENT
  Age: 58 Year
  Sex: Male
  Weight: 124 kg

DRUGS (3)
  1. TRAMADOL BASE [Suspect]
     Active Substance: TRAMADOL
     Route: 065
  2. NORDIAZEPAM [Concomitant]
     Active Substance: NORDAZEPAM
  3. NEFOPAM (CHLORHYDRATE DE) [Concomitant]
     Active Substance: NEFOPAM HYDROCHLORIDE

REACTIONS (1)
  - Asphyxia [Fatal]

NARRATIVE: CASE EVENT DATE: 201508
